FAERS Safety Report 8495358-0 (Version None)
Quarter: 2012Q3

REPORT INFORMATION
  Report Type: 
  Country: None (occurrence: None)
  Receive Date: 20120709
  Receipt Date: 20120622
  Transmission Date: 20120928
  Serious: No
  Sender: FDA-Public Use
  Company Number: US-ASTRAZENECA-2012SE42277

PATIENT
  Age: 76 Year
  Sex: Female
  Weight: 74.8 kg

DRUGS (5)
  1. DYAZIDE [Concomitant]
     Indication: BLOOD PRESSURE
  2. NEXIUM [Suspect]
     Indication: GASTROOESOPHAGEAL REFLUX DISEASE
     Route: 048
  3. PRAMIN [Concomitant]
     Indication: HOT FLUSH
  4. NEXIUM [Suspect]
     Route: 048
  5. RELAFEN [Concomitant]

REACTIONS (3)
  - THERAPEUTIC RESPONSE DECREASED [None]
  - OFF LABEL USE [None]
  - GASTROOESOPHAGEAL REFLUX DISEASE [None]
